FAERS Safety Report 10459278 (Version 3)
Quarter: 2015Q1

REPORT INFORMATION
  Report Type: Spontaneous
  Country: JP (occurrence: JP)
  Receive Date: 20140917
  Receipt Date: 20150108
  Transmission Date: 20150720
  Serious: Yes (Death, Hospitalization)
  Sender: FDA-Public Use
  Company Number: JP-SA-2014SA124573

PATIENT
  Age: 71 Year
  Sex: Female
  Weight: 48.6 kg

DRUGS (4)
  1. TS-1 [Suspect]
     Active Substance: GIMERACIL\OTERACIL\TEGAFUR
     Indication: EXTRAMAMMARY PAGET^S DISEASE
     Route: 048
     Dates: start: 20140402, end: 20140415
  2. TAXOTERE [Suspect]
     Active Substance: DOCETAXEL
     Indication: METASTASIS
     Route: 042
     Dates: start: 20140402
  3. TS-1 [Suspect]
     Active Substance: GIMERACIL\OTERACIL\TEGAFUR
     Indication: METASTASIS
     Route: 048
     Dates: start: 20140402, end: 20140415
  4. TAXOTERE [Suspect]
     Active Substance: DOCETAXEL
     Indication: EXTRAMAMMARY PAGET^S DISEASE
     Route: 042
     Dates: start: 20140402

REACTIONS (4)
  - Ileus [Fatal]
  - White blood cell count decreased [Not Recovered/Not Resolved]
  - Diarrhoea [Recovering/Resolving]
  - Product use issue [Fatal]

NARRATIVE: CASE EVENT DATE: 20140411
